FAERS Safety Report 6530917-3 (Version None)
Quarter: 2010Q1

REPORT INFORMATION
  Report Type: 
  Country: None (occurrence: None)
  Receive Date: 20100108
  Receipt Date: 20090602
  Transmission Date: 20100710
  Serious: No
  Sender: FDA-Public Use
  Company Number: A0788024A

PATIENT
  Age: 83 Year
  Sex: Female

DRUGS (6)
  1. LOVAZA [Suspect]
     Indication: BLOOD CHOLESTEROL INCREASED
     Dosage: 2CAP TWICE PER DAY
     Route: 048
     Dates: start: 20060101, end: 20090401
  2. SYNTHROID [Concomitant]
  3. NEXIUM [Concomitant]
  4. ASPIRIN [Concomitant]
  5. CALCIUM CITRATE [Concomitant]
  6. MULTI-VITAMIN [Concomitant]

REACTIONS (1)
  - GALLBLADDER PAIN [None]
